FAERS Safety Report 23410928 (Version 1)
Quarter: 2024Q1

REPORT INFORMATION
  Report Type: Report from Study
  Country: US (occurrence: US)
  Receive Date: 20240117
  Receipt Date: 20240117
  Transmission Date: 20240410
  Serious: Yes (Other)
  Sender: FDA-Public Use
  Company Number: US-GILEAD-2024-0657581

PATIENT
  Sex: Female

DRUGS (1)
  1. SACITUZUMAB GOVITECAN-HZIY [Suspect]
     Active Substance: SACITUZUMAB GOVITECAN-HZIY
     Indication: Breast cancer female
     Dosage: 654 MG, OVER 3 HOURS D1/D8 EVERY 21 DAYS
     Route: 042
     Dates: start: 20231012, end: 20240111

REACTIONS (2)
  - Disease progression [Unknown]
  - Drug ineffective [Unknown]
